FAERS Safety Report 7235224-1 (Version None)
Quarter: 2011Q1

REPORT INFORMATION
  Report Type: 
  Country: None (occurrence: None)
  Receive Date: 20110107
  Receipt Date: 20110103
  Transmission Date: 20110831
  Serious: Yes (Death)
  Sender: FDA-Public Use
  Company Number: 2011000053

PATIENT
  Sex: Male

DRUGS (1)
  1. FENTORA [Suspect]
     Dosage: BU
     Route: 002

REACTIONS (1)
  - RENAL FAILURE CHRONIC [None]
